FAERS Safety Report 25816347 (Version 1)
Quarter: 2025Q3

REPORT INFORMATION
  Report Type: Spontaneous
  Country: US (occurrence: US)
  Receive Date: 20250918
  Receipt Date: 20250918
  Transmission Date: 20251020
  Serious: Yes (Other)
  Sender: AMGEN
  Company Number: US-AMGEN-USASP2025176310

PATIENT

DRUGS (2)
  1. RITUXIMAB [Suspect]
     Active Substance: RITUXIMAB
     Indication: Epstein-Barr virus infection reactivation
     Route: 065
  2. PREDNISONE [Suspect]
     Active Substance: PREDNISONE
     Indication: Prophylaxis against graft versus host disease
     Route: 065

REACTIONS (17)
  - Streptococcal bacteraemia [Unknown]
  - Epstein-Barr virus infection reactivation [Unknown]
  - Cytomegalovirus infection reactivation [Unknown]
  - Thrombotic microangiopathy [Unknown]
  - Bacteraemia [Unknown]
  - Transplant failure [Unknown]
  - Cytomegalovirus viraemia [Unknown]
  - Epstein-Barr viraemia [Unknown]
  - Polyomavirus viraemia [Unknown]
  - Escherichia bacteraemia [Recovered/Resolved]
  - Staphylococcal bacteraemia [Recovered/Resolved]
  - Cystitis viral [Unknown]
  - Adenovirus reactivation [Unknown]
  - Stomatitis [Unknown]
  - Herpes simplex reactivation [Unknown]
  - Drug effective for unapproved indication [Unknown]
  - Off label use [Unknown]
